FAERS Safety Report 21010936 (Version 2)
Quarter: 2022Q3

REPORT INFORMATION
  Report Type: Report from Study
  Country: KR (occurrence: KR)
  Receive Date: 20220627
  Receipt Date: 20220715
  Transmission Date: 20221026
  Serious: Yes (Hospitalization)
  Sender: FDA-Public Use
  Company Number: KR-GLAXOSMITHKLINE-KR2022GSK097388

PATIENT

DRUGS (12)
  1. BELIMUMAB [Suspect]
     Active Substance: BELIMUMAB
     Indication: Systemic lupus erythematosus
     Dosage: 600 UNK
     Route: 042
     Dates: start: 20210809
  2. BELIMUMAB [Suspect]
     Active Substance: BELIMUMAB
     Dosage: 640 UNK
     Route: 042
     Dates: start: 20210930
  3. BELIMUMAB [Suspect]
     Active Substance: BELIMUMAB
     Dosage: 720 UNK
     Route: 042
     Dates: start: 20211014
  4. PREDNISOLONE [Concomitant]
     Active Substance: PREDNISOLONE
     Indication: Product used for unknown indication
     Dosage: 5 MG, QD
     Route: 048
     Dates: start: 20220427
  5. PREDNISOLONE [Concomitant]
     Active Substance: PREDNISOLONE
     Dosage: 7.5 MG, QD
     Route: 048
     Dates: start: 20220106
  6. CIPOL-N [Concomitant]
     Indication: Product used for unknown indication
     Dosage: 50 MG, QD
     Route: 048
     Dates: start: 20210916
  7. PANTOCID L [Concomitant]
     Indication: Systemic lupus erythematosus
     Dosage: 1 DF, TID
     Route: 048
     Dates: start: 20211209
  8. TOPICRO OINTMENT [Concomitant]
     Indication: Systemic lupus erythematosus
     Dosage: 1 APPLICATION, QD
     Route: 050
     Dates: start: 20210901
  9. EASYEF SAESAL OINTMENT [Concomitant]
     Indication: Systemic lupus erythematosus
     Dosage: 1 APPLICATION,QD
     Route: 050
     Dates: start: 20210831
  10. PLETAAL SR [Concomitant]
     Indication: Systemic lupus erythematosus
     Dosage: 100 MG, QD
     Route: 048
     Dates: start: 20141024
  11. CITRACAL F [Concomitant]
     Indication: Prophylaxis
     Dosage: 1 DF, QD
     Route: 048
     Dates: start: 20170201
  12. TRENTAL 400 SR TABLET [Concomitant]
     Indication: Seborrhoeic dermatitis
     Dosage: 400 MG, BID
     Route: 048
     Dates: start: 20210603

REACTIONS (1)
  - Dizziness [Recovered/Resolved]

NARRATIVE: CASE EVENT DATE: 20220620
